FAERS Safety Report 23486336 (Version 1)
Quarter: 2024Q1

REPORT INFORMATION
  Report Type: Spontaneous
  Country: None (occurrence: GB)
  Receive Date: 20240206
  Receipt Date: 20240206
  Transmission Date: 20240409
  Serious: Yes (Other)
  Sender: FDA-Public Use
  Company Number: GB-B.Braun Medical Inc.-2152674

PATIENT
  Age: 9 Year
  Sex: Female
  Weight: 34 kg

DRUGS (9)
  1. METRONIDAZOLE [Suspect]
     Active Substance: METRONIDAZOLE
  2. ROCURONIUM [Concomitant]
     Active Substance: ROCURONIUM BROMIDE
  3. ONDANSETRON [Concomitant]
     Active Substance: ONDANSETRON
  4. DEXAMETHASONE [Concomitant]
     Active Substance: DEXAMETHASONE
  5. FENTANYL [Concomitant]
     Active Substance: FENTANYL\FENTANYL CITRATE
  6. PROPOFOL [Concomitant]
     Active Substance: PROPOFOL
  7. CEFTRIAXONE [Concomitant]
     Active Substance: CEFTRIAXONE\CEFTRIAXONE SODIUM
  8. SUGAMMADEX [Concomitant]
     Active Substance: SUGAMMADEX
  9. MORPHINE [Concomitant]
     Active Substance: MORPHINE

REACTIONS (6)
  - Ocular hyperaemia [None]
  - Periorbital swelling [None]
  - Erythema [None]
  - Swelling face [None]
  - Off label use [None]
  - Product administered to patient of inappropriate age [None]
